FAERS Safety Report 8710315 (Version 2)
Quarter: 2013Q4

REPORT INFORMATION
  Report Type: Spontaneous
  Country: US (occurrence: US)
  Receive Date: 20120807
  Receipt Date: 20131101
  Transmission Date: 20140711
  Serious: No
  Sender: FDA-Public Use
  Company Number: US-009507513-1207USA008653

PATIENT
  Sex: Female
  Weight: 74.83 kg

DRUGS (8)
  1. VICTRELIS [Suspect]
     Dosage: 800 MG, TID (EVERY 7-9 HOURS) WITH FOOD
  2. PEGASYS [Suspect]
     Dosage: 180 MICROGRAM/M
  3. RIBAPAK [Suspect]
     Dosage: 1200/DAY
  4. LEVOTHYROXINE SODIUM [Concomitant]
  5. NEXIUM [Concomitant]
  6. CHANTIX [Concomitant]
  7. TYLENOL [Concomitant]
  8. IBUPROFEN [Concomitant]

REACTIONS (10)
  - White blood cell count decreased [Unknown]
  - Haemoglobin decreased [Unknown]
  - Haematocrit decreased [Unknown]
  - Fatigue [Unknown]
  - Headache [Unknown]
  - Weight decreased [Unknown]
  - Nausea [Unknown]
  - Vomiting [Unknown]
  - Diarrhoea [Unknown]
  - Dysgeusia [Unknown]
